FAERS Safety Report 18313847 (Version 1)
Quarter: 2020Q3

REPORT INFORMATION
  Report Type: Spontaneous
  Country: TH (occurrence: TH)
  Receive Date: 20200925
  Receipt Date: 20200925
  Transmission Date: 20201103
  Serious: Yes (Other)
  Sender: FDA-Public Use
  Company Number: TH-009507513-2009THA000576

PATIENT
  Age: 23 Year
  Sex: Female
  Weight: 37 kg

DRUGS (1)
  1. IMPLANON NXT [Suspect]
     Active Substance: ETONOGESTREL
     Indication: CONTRACEPTION
     Dosage: 1 IMPLANT
     Route: 059
     Dates: start: 20170830, end: 20200902

REACTIONS (6)
  - Incorrect product administration duration [Unknown]
  - Syncope [Recovered/Resolved]
  - Fatigue [Recovered/Resolved]
  - Amenorrhoea [Unknown]
  - Weight decreased [Recovering/Resolving]
  - Dizziness [Recovered/Resolved]

NARRATIVE: CASE EVENT DATE: 2017
